FAERS Safety Report 7582998-6 (Version None)
Quarter: 2011Q2

REPORT INFORMATION
  Report Type: 
  Country: None (occurrence: None)
  Receive Date: 20110627
  Receipt Date: 20110627
  Transmission Date: 20111010
  Serious: Yes (Other)
  Sender: FDA-Public Use
  Company Number: None

PATIENT
  Age: 26 Year
  Sex: Female
  Weight: 70.3075 kg

DRUGS (1)
  1. DEPO-PROVERA [Suspect]
     Indication: CONTRACEPTION
     Dosage: 150MG IM
     Route: 030
     Dates: start: 20110603

REACTIONS (5)
  - HYPOAESTHESIA ORAL [None]
  - EYE DISORDER [None]
  - SPEECH DISORDER [None]
  - SLUGGISHNESS [None]
  - STRESS [None]
